FAERS Safety Report 10731638 (Version 2)
Quarter: 2015Q1

REPORT INFORMATION
  Report Type: Report from Study
  Country: US (occurrence: US)
  Receive Date: 20150123
  Receipt Date: 20150203
  Transmission Date: 20150721
  Serious: Yes (Other)
  Sender: FDA-Public Use
  Company Number: US-AMGEN-USASL2015004944

PATIENT
  Age: 54 Year
  Sex: Female
  Weight: 112.47 kg

DRUGS (1)
  1. ENBREL [Suspect]
     Active Substance: ETANERCEPT
     Indication: RHEUMATOID ARTHRITIS
     Dosage: 50 MG, QWK
     Route: 058
     Dates: start: 20140918

REACTIONS (7)
  - Cough [Unknown]
  - Ovarian cyst [Unknown]
  - Diverticulitis [Recovered/Resolved]
  - Nasal congestion [Unknown]
  - Malaise [Unknown]
  - Uterine cyst [Not Recovered/Not Resolved]
  - Nasopharyngitis [Unknown]

NARRATIVE: CASE EVENT DATE: 2014
